FAERS Safety Report 13273700 (Version 1)
Quarter: 2017Q1

REPORT INFORMATION
  Report Type: Spontaneous
  Country: FR (occurrence: FR)
  Receive Date: 20170227
  Receipt Date: 20170227
  Transmission Date: 20170428
  Serious: Yes (Death)
  Sender: FDA-Public Use
  Company Number: FR-PFIZER INC-2017082315

PATIENT
  Age: 90 Year
  Sex: Female

DRUGS (38)
  1. FORTIMEL [Concomitant]
     Active Substance: DIETARY SUPPLEMENT
  2. FLAGYL [Concomitant]
     Active Substance: METRONIDAZOLE\METRONIDAZOLE HYDROCHLORIDE
     Dosage: 1 DF, SINGLE
     Route: 042
     Dates: start: 20170128, end: 20170128
  3. PIPERACILLIN AND TAZOBACTAM [Concomitant]
     Active Substance: PIPERACILLIN SODIUM\TAZOBACTAM SODIUM
     Indication: SEPTIC SHOCK
     Dosage: UNK
     Dates: start: 20170128, end: 201701
  4. CHOLINE CHLORIDE [Concomitant]
     Active Substance: CHOLINE CHLORIDE
  5. CALCIUM D-PANTOTHENATE [Concomitant]
  6. ZYVOXID [Suspect]
     Active Substance: LINEZOLID
     Indication: SEPTIC SHOCK
     Dosage: ONE DOSAGE FORM IN THE MORNING AND ONE DOSAGE FORM IN THE EVENING
     Route: 048
     Dates: start: 20170128, end: 20170207
  7. CALCIPARINE [Suspect]
     Active Substance: HEPARIN CALCIUM
     Indication: ARRHYTHMIA
     Dosage: 5000 IU IN THE MORNING AND 5000 IU IN THE EVENING
     Route: 058
     Dates: start: 201701, end: 20170210
  8. CITRIC ACID [Concomitant]
     Active Substance: CITRIC ACID MONOHYDRATE
  9. POTASSIUM HYDROXIDE. [Concomitant]
     Active Substance: POTASSIUM HYDROXIDE
  10. RIBOFLAVIN [Concomitant]
     Active Substance: RIBOFLAVIN
  11. FUROSEMIDE. [Concomitant]
     Active Substance: FUROSEMIDE
     Dosage: 40 MG, 1X/DAY
  12. LOSARTAN. [Concomitant]
     Active Substance: LOSARTAN
     Dosage: 50 MG, 2X/DAY
  13. RETINYL ACETATE [Concomitant]
  14. SODIUM SELENITE [Concomitant]
     Active Substance: SODIUM SELENITE
  15. SODIUM MOLYBDATE [Concomitant]
  16. SODIUM ASCORBATE [Concomitant]
     Active Substance: SODIUM ASCORBATE
  17. MANGANESE SULPHATE [Concomitant]
  18. PYRIDOXINE HYDROCHLORIDE. [Concomitant]
     Active Substance: PYRIDOXINE HYDROCHLORIDE
  19. BISOPROLOL FUMARATE. [Concomitant]
     Active Substance: BISOPROLOL FUMARATE
     Dosage: 2.5 MG, 2X/DAY
  20. TOCOPHERYL ACETATE [Concomitant]
     Active Substance: .ALPHA.-TOCOPHEROL ACETATE
  21. COPPER GLUCONATE [Concomitant]
     Active Substance: COPPER GLUCONATE
  22. CHROMIUM CHLORIDE [Concomitant]
  23. BIOTIN [Concomitant]
     Active Substance: BIOTIN
  24. CHOLECALCIFEROL [Concomitant]
     Active Substance: CHOLECALCIFEROL
  25. THIAMIN HCL [Concomitant]
  26. POTASSIUM IODIDE. [Concomitant]
     Active Substance: POTASSIUM IODIDE
  27. POTASSIUM CITRATE. [Concomitant]
     Active Substance: POTASSIUM CITRATE
  28. FOLIC ACID. [Concomitant]
     Active Substance: FOLIC ACID
  29. LANSOPRAZOLE. [Concomitant]
     Active Substance: LANSOPRAZOLE
     Dosage: 15 MG, 1X/DAY
  30. TRANSIPEG /00754501/ [Concomitant]
     Active Substance: POLYETHYLENE GLYCOL 3350
     Dosage: 2 DF, 1X/DAY
  31. NICOTINAMIDE [Concomitant]
     Active Substance: NIACINAMIDE
  32. SODIUM FLUORIDE. [Concomitant]
     Active Substance: SODIUM FLUORIDE
  33. CALCIPARINE [Suspect]
     Active Substance: HEPARIN CALCIUM
     Indication: ATRIAL FIBRILLATION
  34. PREVISCAN /00789001/ [Concomitant]
     Active Substance: FLUINDIONE
     Dosage: 0.5 DF, 1X/DAY
  35. MALTODEXTRIN [Concomitant]
     Active Substance: MALTODEXTRIN
     Dosage: UNK
  36. SODIUM CITRATE. [Concomitant]
     Active Substance: SODIUM CITRATE
  37. FERROUS LACTATE [Concomitant]
     Active Substance: FERROUS LACTATE
  38. ZINC SULFATE [Concomitant]
     Active Substance: ZINC SULFATE\ZINC SULFATE ANHYDROUS

REACTIONS (3)
  - Thrombocytopenia [Fatal]
  - Epistaxis [Fatal]
  - Haematuria [Fatal]

NARRATIVE: CASE EVENT DATE: 20170130
